FAERS Safety Report 9848588 (Version 1)
Quarter: 2014Q1

REPORT INFORMATION
  Report Type: Spontaneous
  Country: GR (occurrence: GR)
  Receive Date: 20140128
  Receipt Date: 20140128
  Transmission Date: 20141002
  Serious: Yes (Death, Hospitalization)
  Sender: FDA-Public Use
  Company Number: GR-JNJFOC-20140114779

PATIENT
  Age: 55 Year
  Sex: Male

DRUGS (4)
  1. PREZISTA [Suspect]
     Indication: HIV INFECTION
     Route: 048
  2. DOXORUBICIN HYDROCHLORIDE(CAELYX) [Suspect]
     Indication: KAPOSI^S SARCOMA
     Route: 042
  3. KIVEXA [Concomitant]
     Indication: HIV INFECTION
     Route: 065
  4. NORVIR [Concomitant]
     Indication: HIV INFECTION
     Route: 065

REACTIONS (1)
  - Lymphoma [Fatal]
